FAERS Safety Report 15394148 (Version 2)
Quarter: 2018Q4

REPORT INFORMATION
  Report Type: Report from Study
  Country: CA (occurrence: CA)
  Receive Date: 20180918
  Receipt Date: 20181121
  Transmission Date: 20190204
  Serious: Yes (Other)
  Sender: FDA-Public Use
  Company Number: CA-ROCHE-2147224

PATIENT
  Age: 62 Year
  Sex: Male

DRUGS (4)
  1. RITUXAN [Suspect]
     Active Substance: RITUXIMAB
     Indication: MULTIPLE SCLEROSIS
     Route: 042
     Dates: start: 20180627
  2. TYLENOL [Concomitant]
     Active Substance: ACETAMINOPHEN
     Indication: PREMEDICATION
     Route: 048
     Dates: start: 20180627
  3. SOLU-MEDROL [Concomitant]
     Active Substance: METHYLPREDNISOLONE SODIUM SUCCINATE
     Indication: PREMEDICATION
     Route: 042
     Dates: start: 20180627
  4. BENADRYL [Concomitant]
     Active Substance: DIPHENHYDRAMINE HYDROCHLORIDE
     Indication: PREMEDICATION
     Route: 048
     Dates: start: 20180627

REACTIONS (2)
  - Seizure [Recovered/Resolved]
  - Blood pressure increased [Not Recovered/Not Resolved]

NARRATIVE: CASE EVENT DATE: 20180627
